FAERS Safety Report 8333834-1 (Version None)
Quarter: 2012Q1

REPORT INFORMATION
  Report Type: 
  Country: None (occurrence: None)
  Receive Date: 20120328
  Receipt Date: 20100913
  Transmission Date: 20120608
  Serious: Yes (Other)
  Sender: FDA-Public Use
  Company Number: PHHY2010US58058

PATIENT
  Age: 63 Year
  Sex: Male

DRUGS (8)
  1. VALTURNA [Suspect]
  2. FUROSEMIDE [Concomitant]
  3. NIACIN [Concomitant]
  4. SIMVASTATIN [Concomitant]
  5. ALLOPURINOL [Concomitant]
  6. COQ10 (UBIDECARENONE) [Concomitant]
  7. POTASSIUM CHLORIDE [Concomitant]
  8. ASPIRIN [Concomitant]

REACTIONS (2)
  - OEDEMA PERIPHERAL [None]
  - BLOOD PRESSURE INCREASED [None]
